FAERS Safety Report 26057912 (Version 3)
Quarter: 2025Q4

REPORT INFORMATION
  Report Type: Spontaneous
  Country: EU (occurrence: EU)
  Receive Date: 20251118
  Receipt Date: 20251219
  Transmission Date: 20260117
  Serious: Yes (Hospitalization, Other)
  Sender: ALKEM
  Company Number: None

PATIENT
  Age: 5 Year
  Sex: Female
  Weight: 10.9 kg

DRUGS (4)
  1. TACROLIMUS [Suspect]
     Active Substance: TACROLIMUS
     Indication: Immunosuppressant drug therapy
     Dosage: 1.25 MILLIGRAM, BID
     Route: 048
     Dates: start: 20190717
  2. TACROLIMUS [Suspect]
     Active Substance: TACROLIMUS
     Dosage: UNK (DOSE REDUCED)
     Route: 048
  3. MYCOPHENOLATE MOFETIL [Suspect]
     Active Substance: MYCOPHENOLATE MOFETIL
     Indication: Immunosuppressant drug therapy
     Dosage: 75 MILLIGRAM, BID
     Route: 048
     Dates: start: 20190717
  4. MYCOPHENOLATE MOFETIL [Suspect]
     Active Substance: MYCOPHENOLATE MOFETIL
     Dosage: UNK (RECHALLENGE DOSE)
     Route: 048

REACTIONS (7)
  - Stomatitis necrotising [Recovered/Resolved]
  - Immunosuppressant drug level increased [Recovering/Resolving]
  - Mouth ulceration [Recovered/Resolved]
  - Neutropenia [Unknown]
  - Biliary tract infection [Recovering/Resolving]
  - Epstein-Barr virus infection [Unknown]
  - Staphylococcal infection [Unknown]

NARRATIVE: CASE EVENT DATE: 20191101
